FAERS Safety Report 23843767 (Version 1)
Quarter: 2024Q2

REPORT INFORMATION
  Report Type: Report from Study
  Country: US (occurrence: US)
  Receive Date: 20240510
  Receipt Date: 20240510
  Transmission Date: 20240716
  Serious: Yes (Other)
  Sender: FDA-Public Use
  Company Number: US-ABBVIE-5753110

PATIENT
  Sex: Female

DRUGS (1)
  1. HUMIRA [Suspect]
     Active Substance: ADALIMUMAB
     Indication: Product used for unknown indication
     Route: 058
     Dates: start: 202403

REACTIONS (4)
  - Systemic lupus erythematosus [Unknown]
  - Off label use [Unknown]
  - Arthralgia [Unknown]
  - Device issue [Unknown]

NARRATIVE: CASE EVENT DATE: 20240101
